FAERS Safety Report 7034704-1 (Version None)
Quarter: 2010Q4

REPORT INFORMATION
  Report Type: 
  Country: None (occurrence: None)
  Receive Date: 20101008
  Receipt Date: 20100930
  Transmission Date: 20110411
  Serious: Yes (Hospitalization, Other)
  Sender: FDA-Public Use
  Company Number: CH-JNJFOC-20100908661

PATIENT
  Age: 77 Year
  Sex: Female
  Weight: 70 kg

DRUGS (12)
  1. TOPAMAX [Suspect]
     Indication: PRODUCT USED FOR UNKNOWN INDICATION
     Route: 065
  2. TOPAMAX [Suspect]
     Route: 065
  3. TOPAMAX [Suspect]
     Route: 065
  4. ARICEPT [Concomitant]
     Route: 048
  5. CITALOPRAM HYDROBROMIDE [Concomitant]
     Route: 048
  6. EXELON [Concomitant]
     Route: 061
  7. NEXIUM [Concomitant]
     Route: 048
  8. COLCHICINE [Concomitant]
     Route: 048
  9. ACETAMINOPHEN [Concomitant]
     Route: 048
  10. TRAMADOL HCL [Concomitant]
     Route: 048
  11. ZOLPIDEM [Concomitant]
     Route: 048
  12. DEPAKENE [Concomitant]
     Route: 048

REACTIONS (5)
  - ARTHRALGIA [None]
  - ARTHRITIS [None]
  - DECREASED APPETITE [None]
  - GAIT DISTURBANCE [None]
  - WEIGHT DECREASED [None]
